FAERS Safety Report 14668263 (Version 1)
Quarter: 2018Q1

REPORT INFORMATION
  Report Type: Spontaneous
  Country: US (occurrence: US)
  Receive Date: 20180322
  Receipt Date: 20180322
  Transmission Date: 20180509
  Serious: No
  Sender: FDA-Public Use
  Company Number: US-ELI_LILLY_AND_COMPANY-US201802010961

PATIENT
  Sex: Female

DRUGS (3)
  1. STEROIDS [Suspect]
     Active Substance: UNSPECIFIED INGREDIENT
     Indication: CHEMOTHERAPY
     Dosage: UNK UNK, UNKNOWN
     Route: 042
  2. HUMALOG [Suspect]
     Active Substance: INSULIN LISPRO
     Indication: TYPE 2 DIABETES MELLITUS
     Dosage: UNK UNK, TID (SLIDING SCALE)
     Route: 065
     Dates: start: 201706
  3. LANTUS [Concomitant]
     Active Substance: INSULIN GLARGINE
     Indication: TYPE 2 DIABETES MELLITUS
     Dosage: 25 U, EACH EVENING

REACTIONS (2)
  - Blood glucose increased [Unknown]
  - Glycosylated haemoglobin increased [Unknown]
